FAERS Safety Report 7554183-5 (Version None)
Quarter: 2011Q2

REPORT INFORMATION
  Report Type: 
  Country: None (occurrence: None)
  Receive Date: 20110617
  Receipt Date: 20110615
  Transmission Date: 20111010
  Serious: Yes (Death, Other)
  Sender: FDA-Public Use
  Company Number: PHHY2011CN52867

PATIENT
  Age: 67 Year
  Sex: Male

DRUGS (7)
  1. PREDNISONE [Suspect]
     Indication: DIFFUSE LARGE B-CELL LYMPHOMA
     Dosage: 60 MG, UNK
  2. DOXORUBICIN HCL [Suspect]
     Dosage: 60 MG, UNK
  3. DOXORUBICIN HCL [Suspect]
     Indication: DIFFUSE LARGE B-CELL LYMPHOMA
     Dosage: 40 MG, UNK
  4. RITUXIMAB [Suspect]
     Indication: DIFFUSE LARGE B-CELL LYMPHOMA
     Dosage: 500 MG, UNK
  5. CYCLOPHOSPHAMIDE [Suspect]
     Indication: DIFFUSE LARGE B-CELL LYMPHOMA
     Dosage: 400 MG, UNK
  6. CYCLOPHOSPHAMIDE [Suspect]
     Dosage: 600 MG, UNK
  7. VINCRISTINE [Suspect]
     Indication: DIFFUSE LARGE B-CELL LYMPHOMA
     Dosage: 2 MG, UNK

REACTIONS (7)
  - DIARRHOEA [None]
  - PNEUMONIA [None]
  - NEUTROPENIA [None]
  - ACUTE RESPIRATORY DISTRESS SYNDROME [None]
  - INTESTINAL HAEMORRHAGE [None]
  - PERITONITIS [None]
  - GENERAL PHYSICAL CONDITION ABNORMAL [None]
